FAERS Safety Report 15884898 (Version 3)
Quarter: 2019Q1

REPORT INFORMATION
  Report Type: Spontaneous
  Country: US (occurrence: US)
  Receive Date: 20190129
  Receipt Date: 20190208
  Transmission Date: 20190417
  Serious: Yes (Other)
  Sender: FDA-Public Use
  Company Number: US-AKORN PHARMACEUTICALS-2019AKN00114

PATIENT
  Age: 28 Year
  Sex: Female
  Weight: 57.6 kg

DRUGS (2)
  1. MYORISAN [Suspect]
     Active Substance: ISOTRETINOIN
     Indication: ACNE
     Dosage: 40 MG, 1X/DAY
     Dates: start: 20181218, end: 20181228
  2. ZOLOFT [Concomitant]
     Active Substance: SERTRALINE HYDROCHLORIDE
     Dosage: 50 MG, 1X/DAY

REACTIONS (14)
  - Dysuria [Recovering/Resolving]
  - Anger [Recovering/Resolving]
  - Irritability [Recovering/Resolving]
  - Ocular discomfort [Recovering/Resolving]
  - Headache [Recovering/Resolving]
  - Pruritus [Recovering/Resolving]
  - Suicidal ideation [Recovering/Resolving]
  - Lip injury [Recovering/Resolving]
  - Somnolence [Recovering/Resolving]
  - Dry skin [Recovering/Resolving]
  - Fatigue [Recovering/Resolving]
  - Genital burning sensation [Recovering/Resolving]
  - Epistaxis [Recovering/Resolving]
  - Dry eye [Recovering/Resolving]

NARRATIVE: CASE EVENT DATE: 201812
